FAERS Safety Report 19332962 (Version 1)
Quarter: 2021Q2

REPORT INFORMATION
  Report Type: Spontaneous
  Country: US (occurrence: US)
  Receive Date: 20210529
  Receipt Date: 20210529
  Transmission Date: 20210717
  Serious: No
  Sender: FDA-Public Use
  Company Number: US-UNITED THERAPEUTICS-UNT-2021-009622

PATIENT
  Age: 69 Year
  Sex: Female
  Weight: 60.32 kg

DRUGS (2)
  1. REMODULIN [Suspect]
     Active Substance: TREPROSTINIL
     Indication: PULMONARY ARTERIAL HYPERTENSION
     Dosage: UNK UNK, CONTINUING
     Route: 058
     Dates: start: 20210518, end: 202105
  2. REMODULIN [Suspect]
     Active Substance: TREPROSTINIL
     Dosage: 0.00375 ?G/KG, CONTINUING
     Route: 058
     Dates: start: 202105

REACTIONS (4)
  - Device use error [Unknown]
  - Feeling abnormal [Unknown]
  - Infusion site pain [Unknown]
  - Accidental overdose [Unknown]

NARRATIVE: CASE EVENT DATE: 202105
